FAERS Safety Report 9841178 (Version 1)
Quarter: 2014Q1

REPORT INFORMATION
  Report Type: Spontaneous
  Country: US (occurrence: None)
  Receive Date: 20140123
  Receipt Date: 20140123
  Transmission Date: 20141002
  Serious: Yes (Hospitalization)
  Sender: FDA-Public Use
  Company Number: None

PATIENT
  Age: 40 Year
  Sex: Female
  Weight: 86.18 kg

DRUGS (6)
  1. INVOKANA [Suspect]
     Indication: TYPE 2 DIABETES MELLITUS
     Dosage: 1 PILL QD ORAL
     Route: 048
     Dates: start: 20130905, end: 20131213
  2. APIDRA [Concomitant]
  3. INSULIN PUMP [Concomitant]
  4. MEDTRONIC INSULIN PUMP MODEL 723 [Concomitant]
  5. IRBESARTNA [Concomitant]
  6. METFORMIN [Concomitant]

REACTIONS (1)
  - Transient ischaemic attack [None]
